FAERS Safety Report 8544258-6 (Version None)
Quarter: 2012Q3

REPORT INFORMATION
  Report Type: 
  Country: None (occurrence: None)
  Receive Date: 20120727
  Receipt Date: 20120723
  Transmission Date: 20120928
  Serious: Yes (Hospitalization, Other)
  Sender: FDA-Public Use
  Company Number: US-TEVA-340449USA

PATIENT
  Sex: Male

DRUGS (3)
  1. TRETINOIN [Concomitant]
     Dosage: .1 PERCENT;
  2. CLARAVIS [Suspect]
     Route: 048
     Dates: end: 20120423
  3. CLEOCIN T [Concomitant]
     Dosage: .1 PERCENT; LOTION

REACTIONS (1)
  - SUICIDE ATTEMPT [None]
